FAERS Safety Report 8505308-6 (Version None)
Quarter: 2012Q3

REPORT INFORMATION
  Report Type: 
  Country: None (occurrence: None)
  Receive Date: 20120712
  Receipt Date: 20120705
  Transmission Date: 20120928
  Serious: Yes (Hospitalization)
  Sender: FDA-Public Use
  Company Number: FR-TEVA-347457USA

PATIENT
  Sex: Female
  Weight: 58.7 kg

DRUGS (4)
  1. DEXAMETHASONE [Suspect]
     Indication: MANTLE CELL LYMPHOMA
  2. TREANDA [Suspect]
     Indication: MANTLE CELL LYMPHOMA
     Route: 042
  3. VELCADE [Suspect]
     Indication: MANTLE CELL LYMPHOMA
     Route: 058
  4. RITUXAN [Suspect]
     Indication: MANTLE CELL LYMPHOMA
     Route: 042

REACTIONS (2)
  - HYPOGLYCAEMIA [None]
  - PYREXIA [None]
